FAERS Safety Report 10230858 (Version 2)
Quarter: 2014Q2

REPORT INFORMATION
  Report Type: Spontaneous
  Country: IT (occurrence: IT)
  Receive Date: 20140611
  Receipt Date: 20140612
  Transmission Date: 20141212
  Serious: Yes (Other)
  Sender: FDA-Public Use
  Company Number: IT-B.I. PHARMACEUTICALS,INC./RIDGEFIELD-2014-BI-25462IT

PATIENT
  Age: 38 Year
  Sex: Male

DRUGS (2)
  1. VIRAMUNE [Suspect]
     Indication: ACUTE HIV INFECTION
     Route: 048
     Dates: start: 20140408, end: 20140428
  2. RILUTEK [Concomitant]
     Route: 048
     Dates: start: 20131201, end: 20140523

REACTIONS (2)
  - Asthenia [Not Recovered/Not Resolved]
  - Myalgia [Not Recovered/Not Resolved]
